FAERS Safety Report 11718281 (Version 2)
Quarter: 2015Q4

REPORT INFORMATION
  Report Type: Spontaneous
  Country: GB (occurrence: GB)
  Receive Date: 20151110
  Receipt Date: 20151112
  Transmission Date: 20160304
  Serious: Yes (Other)
  Sender: FDA-Public Use
  Company Number: GB-TEVA-607914ISR

PATIENT
  Age: 11 Week
  Sex: Female
  Weight: 3.8 kg

DRUGS (6)
  1. ESMOLOL [Suspect]
     Active Substance: ESMOLOL HYDROCHLORIDE
     Indication: TACHYARRHYTHMIA
     Dosage: LOADING DOSE
     Route: 065
  2. AMIODARONE [Suspect]
     Active Substance: AMIODARONE
     Indication: TACHYARRHYTHMIA
     Dosage: 10 MCG/KG/MIN FOR 10 HOURS
     Route: 041
  3. ESMOLOL [Suspect]
     Active Substance: ESMOLOL HYDROCHLORIDE
     Indication: TACHYARRHYTHMIA
     Dosage: 25 MCG/KG/MIN
     Route: 041
  4. AMIODARONE [Suspect]
     Active Substance: AMIODARONE
     Indication: TACHYARRHYTHMIA
     Dosage: SECOND LOADING DOSE
     Route: 065
  5. AMIODARONE [Suspect]
     Active Substance: AMIODARONE
     Indication: TACHYARRHYTHMIA
     Dosage: LOADING DOSE
     Route: 065
  6. ADENOSINE. [Concomitant]
     Active Substance: ADENOSINE
     Indication: TACHYARRHYTHMIA
     Route: 065

REACTIONS (2)
  - Cardiac output decreased [Recovered/Resolved]
  - Bradycardia [Recovered/Resolved]
